FAERS Safety Report 8166731-5 (Version None)
Quarter: 2012Q1

REPORT INFORMATION
  Report Type: 
  Country: None (occurrence: None)
  Receive Date: 20120221
  Receipt Date: 20120207
  Transmission Date: 20120608
  Serious: Yes (Hospitalization)
  Sender: FDA-Public Use
  Company Number: TCI2012A00538

PATIENT
  Age: 85 Year
  Sex: Female

DRUGS (1)
  1. LANSOPRAZOLE [Suspect]
     Indication: GASTRIC ULCER
     Dosage: 15 MG (15 MG, 1 IN 1 D)
     Route: 048

REACTIONS (2)
  - RENAL FAILURE ACUTE [None]
  - HAEMOLYTIC ANAEMIA [None]
